FAERS Safety Report 4676661-9 (Version None)
Quarter: 2005Q2

REPORT INFORMATION
  Report Type: 
  Country: None (occurrence: None)
  Receive Date: 20050527
  Receipt Date: 20050519
  Transmission Date: 20051028
  Serious: Yes (Hospitalization)
  Sender: FDA-Public Use
  Company Number: NO-BRISTOL-MYERS SQUIBB COMPANY-12976502

PATIENT

DRUGS (1)
  1. APROVEL [Suspect]
     Route: 048
     Dates: start: 20030101, end: 20041029

REACTIONS (5)
  - ALANINE AMINOTRANSFERASE INCREASED [None]
  - ASPARTATE AMINOTRANSFERASE INCREASED [None]
  - DECREASED APPETITE [None]
  - JAUNDICE [None]
  - NAUSEA [None]
